FAERS Safety Report 14422433 (Version 1)
Quarter: 2018Q1

REPORT INFORMATION
  Report Type: Report from Study
  Country: GB (occurrence: GB)
  Receive Date: 20180123
  Receipt Date: 20180123
  Transmission Date: 20180509
  Serious: Yes (Hospitalization)
  Sender: FDA-Public Use
  Company Number: GB-BIOGEN-2018BI00513388

PATIENT
  Age: 47 Year
  Sex: Female

DRUGS (1)
  1. TYSABRI [Suspect]
     Active Substance: NATALIZUMAB
     Indication: RELAPSING-REMITTING MULTIPLE SCLEROSIS
     Dosage: 17TH DOSE ON 17TH JANUARY 2018
     Route: 042
     Dates: start: 201609

REACTIONS (2)
  - Urinary tract infection [Recovered/Resolved]
  - Hyperparathyroidism [Recovered/Resolved]

NARRATIVE: CASE EVENT DATE: 20171217
